FAERS Safety Report 10244945 (Version 1)
Quarter: 2014Q2

REPORT INFORMATION
  Report Type: Spontaneous
  Country: US (occurrence: US)
  Receive Date: 20140618
  Receipt Date: 20140618
  Transmission Date: 20141212
  Serious: No
  Sender: FDA-Public Use
  Company Number: US-GALDERMA-US14001895

PATIENT
  Age: 27 Year
  Sex: Male

DRUGS (2)
  1. MIRVASO (BRIMONIDINE) TOPICAL GEL, 0.33% [Suspect]
     Indication: ERYTHEMA
     Dosage: 0.33%
     Route: 061
     Dates: start: 20140521
  2. DOVE CARE FOR MEN FACE WASH [Concomitant]
     Indication: THERAPEUTIC SKIN CARE TOPICAL
     Route: 061

REACTIONS (3)
  - Pallor [Not Recovered/Not Resolved]
  - Off label use [Not Recovered/Not Resolved]
  - Accidental exposure to product [Recovered/Resolved]
